FAERS Safety Report 8429344-3 (Version None)
Quarter: 2012Q2

REPORT INFORMATION
  Report Type: 
  Country: None (occurrence: None)
  Receive Date: 20120612
  Receipt Date: 20120601
  Transmission Date: 20120825
  Serious: Yes (Hospitalization, Other)
  Sender: FDA-Public Use
  Company Number: US-SANOFI-AVENTIS-2011SA047966

PATIENT
  Age: 60 Year
  Sex: Male

DRUGS (15)
  1. PLAVIX [Suspect]
     Route: 048
     Dates: start: 20090820, end: 20091201
  2. PLAVIX [Suspect]
     Indication: STENT PLACEMENT
     Route: 048
     Dates: start: 20090820, end: 20091201
  3. PLAVIX [Suspect]
     Route: 048
     Dates: start: 20091201, end: 20091214
  4. TRAMADOL HCL [Concomitant]
  5. METOPROLOL TARTRATE [Concomitant]
     Route: 048
  6. LANTUS [Concomitant]
     Dosage: DOSE:30 UNIT(S)
  7. ASPIRIN [Suspect]
     Route: 048
  8. PLAVIX [Suspect]
     Route: 048
     Dates: start: 20091201, end: 20091214
  9. HYZAAR [Concomitant]
     Route: 048
  10. GLIPIZIDE [Concomitant]
     Route: 048
  11. FLEXERIL [Concomitant]
     Route: 048
  12. CITALOPRAM HYDROBROMIDE [Concomitant]
  13. SIMVASTATIN [Concomitant]
     Route: 048
  14. DARVOCET-N 50 [Concomitant]
     Dosage: DOSE:100 NOT APPLICABLE
  15. COLACE [Concomitant]
     Route: 048

REACTIONS (15)
  - SPINAL COLUMN STENOSIS [None]
  - HAEMORRHAGIC STROKE [None]
  - COMA [None]
  - GAIT DISTURBANCE [None]
  - HAEMATURIA [None]
  - CARDIAC FLUTTER [None]
  - MUSCULAR WEAKNESS [None]
  - BACK PAIN [None]
  - PARAESTHESIA [None]
  - HYPERTENSION [None]
  - QUADRIPLEGIA [None]
  - HEADACHE [None]
  - ATELECTASIS [None]
  - EPISTAXIS [None]
  - DIZZINESS [None]
